FAERS Safety Report 25416279 (Version 4)
Quarter: 2025Q3

REPORT INFORMATION
  Report Type: Spontaneous
  Country: US (occurrence: US)
  Receive Date: 20250610
  Receipt Date: 20250811
  Transmission Date: 20251021
  Serious: Yes (Hospitalization, Other)
  Sender: RADIUS PHARM
  Company Number: US-RADIUS HEALTH INC.-US-RADIUS-25049194

PATIENT
  Sex: Female

DRUGS (2)
  1. TYMLOS [Suspect]
     Active Substance: ABALOPARATIDE
     Indication: Senile osteoporosis
     Dosage: 80 MICROGRAM, QD
     Route: 058
     Dates: start: 20250501
  2. ASPIRIN [Concomitant]
     Active Substance: ASPIRIN
     Indication: Product used for unknown indication

REACTIONS (10)
  - Transient ischaemic attack [Unknown]
  - Heart rate increased [Unknown]
  - Injection site bruising [Unknown]
  - Dizziness [Unknown]
  - Palpitations [Recovered/Resolved]
  - Fatigue [Unknown]
  - Arthralgia [Unknown]
  - Injection site bruising [Unknown]
  - Product dose omission issue [Unknown]
  - Product administered at inappropriate site [Unknown]

NARRATIVE: CASE EVENT DATE: 20250101
